FAERS Safety Report 5167972-1 (Version None)
Quarter: 2006Q4

REPORT INFORMATION
  Report Type: 
  Country: None (occurrence: None)
  Receive Date: 20061208
  Receipt Date: 20051207
  Transmission Date: 20070319
  Serious: No
  Sender: FDA-Public Use
  Company Number: US-GLAXOSMITHKLINE-A0584976A

PATIENT
  Age: 68 Year
  Sex: Female

DRUGS (3)
  1. AVANDAMET [Suspect]
     Dosage: 4MG TWICE PER DAY
     Route: 048
     Dates: start: 20051110
  2. ELAVIL [Concomitant]
  3. MAXZIDE [Concomitant]

REACTIONS (1)
  - SOMNOLENCE [None]
